FAERS Safety Report 15668832 (Version 11)
Quarter: 2021Q2

REPORT INFORMATION
  Report Type: Spontaneous
  Country: GB (occurrence: GB)
  Receive Date: 20181129
  Receipt Date: 20210609
  Transmission Date: 20210716
  Serious: Yes (Other)
  Sender: FDA-Public Use
  Company Number: GB-SUN PHARMACEUTICAL INDUSTRIES LTD-2018RR-192182

PATIENT
  Age: 51 Year
  Sex: Female

DRUGS (29)
  1. IRON [Concomitant]
     Active Substance: IRON
     Indication: PRODUCT USED FOR UNKNOWN INDICATION
     Dosage: UNK
     Route: 048
  2. METOCLOPRAMIDE. [Concomitant]
     Active Substance: METOCLOPRAMIDE
     Indication: PRODUCT USED FOR UNKNOWN INDICATION
     Dosage: 10 MILLIGRAM, UNK
     Route: 048
     Dates: start: 20160511, end: 20160830
  3. PREGABALIN. [Concomitant]
     Active Substance: PREGABALIN
     Indication: PRODUCT USED FOR UNKNOWN INDICATION
     Dosage: UNK
     Route: 065
  4. ZOMORPH [Concomitant]
     Active Substance: MORPHINE SULFATE
     Indication: PRODUCT USED FOR UNKNOWN INDICATION
     Dosage: 60 MILLIGRAM, QD
     Route: 048
  5. TRASTUZUMAB. [Suspect]
     Active Substance: TRASTUZUMAB
     Dosage: 367.5 MILLIGRAM, 3/WEEK, TIW
     Route: 042
     Dates: start: 20160920, end: 20170110
  6. TRASTUZUMAB. [Suspect]
     Active Substance: TRASTUZUMAB
     Indication: BREAST CANCER METASTATIC
     Dosage: 525 MILLIGRAM, 3DOSE/WEEK, TIW, LOADING DOSE
     Route: 041
     Dates: start: 20160510, end: 20160510
  7. ANASTROZOLE. [Suspect]
     Active Substance: ANASTROZOLE
     Indication: BREAST CANCER METASTATIC
     Dosage: 1 MILLIGRAM, DAILY
     Route: 048
     Dates: start: 20170127
  8. TRASTUZUMAB. [Suspect]
     Active Substance: TRASTUZUMAB
     Dosage: 388.5 MILLIGRAM
     Route: 042
     Dates: start: 20160606, end: 20160606
  9. TRASTUZUMAB. [Suspect]
     Active Substance: TRASTUZUMAB
     Dosage: 346.5 MILLIGRAM, 3/WEEK
     Route: 042
     Dates: start: 20170517, end: 20170703
  10. TRASTUZUMAB. [Suspect]
     Active Substance: TRASTUZUMAB
     Dosage: 357 MILLIGRAM, 3/WEEK, TIW
     Route: 042
     Dates: start: 20170201, end: 20170426
  11. DEXAMETHASONE. [Concomitant]
     Active Substance: DEXAMETHASONE
     Indication: PRODUCT USED FOR UNKNOWN INDICATION
     Dosage: 8 MILLIGRAM, UNK
     Route: 048
     Dates: start: 20160511, end: 20160830
  12. CYCLIZINE [Concomitant]
     Active Substance: CYCLIZINE
     Indication: PRODUCT USED FOR UNKNOWN INDICATION
     Dosage: 50 MILLIGRAM, UNK
     Route: 048
     Dates: start: 20160627, end: 20160830
  13. PERTUZUMAB. [Suspect]
     Active Substance: PERTUZUMAB
     Indication: BREAST CANCER METASTATIC
     Dosage: 840 MILLIGRAM, 1 DOSE/3 WEEKS, LOADING DOSE
     Route: 042
     Dates: start: 20160510, end: 20160510
  14. DOCETAXEL. [Suspect]
     Active Substance: DOCETAXEL
     Indication: BREAST CANCER METASTATIC
     Dosage: 130 MILLIGRAM, 3/WEEK, TIW
     Route: 042
     Dates: start: 20160511, end: 20160808
  15. CODEINE PHOSPHATE [Concomitant]
     Active Substance: CODEINE PHOSPHATE
     Indication: PRODUCT USED FOR UNKNOWN INDICATION
     Dosage: 60 MILLIGRAM, UNK
     Route: 048
     Dates: start: 20161101, end: 20161101
  16. TRASTUZUMAB. [Suspect]
     Active Substance: TRASTUZUMAB
     Indication: BREAST CANCER METASTATIC
     Dosage: LOADING DOSE
     Route: 042
     Dates: start: 20160510, end: 20160510
  17. TRASTUZUMAB. [Suspect]
     Active Substance: TRASTUZUMAB
     Dosage: 388.5 MILLIGRAM, 3/WEEK
     Route: 042
     Dates: start: 20160718, end: 20160830
  18. TRASTUZUMAB. [Suspect]
     Active Substance: TRASTUZUMAB
     Dosage: 378 MILLIGRAM, UNK
     Route: 042
     Dates: start: 20160627, end: 20160627
  19. TRASTUZUMAB. [Suspect]
     Active Substance: TRASTUZUMAB
     Dosage: 378 MILLIGRAM, 1 DOSE/3 WEEKS, TIW
     Route: 042
     Dates: start: 20201013
  20. ENOXAPARIN [Concomitant]
     Active Substance: ENOXAPARIN
     Indication: PRODUCT USED FOR UNKNOWN INDICATION
     Dosage: 40 MILLIGRAM, UNK
     Route: 058
     Dates: start: 20161101, end: 20161101
  21. PARACETAMOL [Concomitant]
     Active Substance: ACETAMINOPHEN
     Indication: PRODUCT USED FOR UNKNOWN INDICATION
     Dosage: UNK
     Route: 048
  22. PERTUZUMAB. [Suspect]
     Active Substance: PERTUZUMAB
     Dosage: 420 MILLIGRAM, 3/WEEK
     Route: 042
     Dates: start: 20160606
  23. SEVREDOL [Concomitant]
     Active Substance: MORPHINE
     Indication: PRODUCT USED FOR UNKNOWN INDICATION
     Dosage: 10 MILLIGRAM, DAILY, QD
     Route: 048
     Dates: start: 20161101, end: 20161102
  24. TRASTUZUMAB. [Suspect]
     Active Substance: TRASTUZUMAB
     Dosage: 336 MILLIGRAM, 3/WEEK
     Route: 042
     Dates: start: 20170724, end: 20180904
  25. TRASTUZUMAB. [Suspect]
     Active Substance: TRASTUZUMAB
     Indication: BREAST CANCER METASTATIC
     Dosage: 336 MILLIGRAM, 1 DOSE/3 WEEKS
     Route: 042
     Dates: start: 20180925, end: 20200922
  26. DOCETAXEL. [Suspect]
     Active Substance: DOCETAXEL
     Dosage: 120 MILLIGRAM, 3/WEEK, TIW
     Route: 042
     Dates: start: 20160808, end: 20160830
  27. ZOMORPH [Concomitant]
     Active Substance: MORPHINE SULFATE
     Dosage: 120 MILLIGRAM, UNK
     Route: 048
  28. CHLORPHENAMINE [Concomitant]
     Active Substance: CHLORPHENIRAMINE MALEATE
     Indication: PRODUCT USED FOR UNKNOWN INDICATION
     Dosage: 4 MILLIGRAM
     Route: 048
     Dates: start: 20160627, end: 20160830
  29. SEVREDOL [Concomitant]
     Active Substance: MORPHINE
     Indication: PRODUCT USED FOR UNKNOWN INDICATION
     Dosage: 30 MILLIGRAM, DAILY, QD
     Route: 048

REACTIONS (11)
  - Haemoglobin decreased [Recovered/Resolved]
  - Lower respiratory tract infection [Recovered/Resolved]
  - Off label use [Unknown]
  - Lacrimation increased [Recovered/Resolved]
  - Ejection fraction decreased [Not Recovered/Not Resolved]
  - Haemoglobin decreased [Recovered/Resolved]
  - Anaemia [Recovered/Resolved]
  - Rhinorrhoea [Recovered/Resolved]
  - Intentional product use issue [Unknown]
  - Ejection fraction decreased [Recovered/Resolved]
  - Neutropenia [Recovered/Resolved]

NARRATIVE: CASE EVENT DATE: 20160715
